FAERS Safety Report 5836092-2 (Version None)
Quarter: 2008Q3

REPORT INFORMATION
  Report Type: 
  Country: None (occurrence: None)
  Receive Date: 20080806
  Receipt Date: 20080725
  Transmission Date: 20090109
  Serious: Yes (Other)
  Sender: FDA-Public Use
  Company Number: JP-PFIZER INC-2008063135

PATIENT
  Age: 38 Year
  Sex: Male

DRUGS (3)
  1. CHANTIX [Suspect]
     Indication: SMOKING CESSATION THERAPY
     Route: 048
     Dates: start: 20080711, end: 20080701
  2. PAXIL [Concomitant]
     Route: 048
  3. DEPAS [Concomitant]
     Route: 048

REACTIONS (4)
  - ABNORMAL BEHAVIOUR [None]
  - ANAEMIA [None]
  - DEPRESSED MOOD [None]
  - FEELING ABNORMAL [None]
